FAERS Safety Report 4948622-3 (Version None)
Quarter: 2006Q1

REPORT INFORMATION
  Report Type: 
  Country: None (occurrence: None)
  Receive Date: 20060201
  Receipt Date: 20051103
  Transmission Date: 20060701
  Serious: No
  Sender: FDA-Public Use
  Company Number: 2005PV004629

PATIENT
  Age: 64 Year
  Sex: Female
  Weight: 83.4619 kg

DRUGS (24)
  1. BYETTA [Suspect]
     Indication: DIABETES MELLITUS NON-INSULIN-DEPENDENT
     Dosage: SEE IMAGE
     Route: 058
     Dates: start: 20050101, end: 20051027
  2. BYETTA [Suspect]
     Indication: DIABETES MELLITUS NON-INSULIN-DEPENDENT
     Dosage: SEE IMAGE
     Route: 058
     Dates: start: 20051027
  3. GLUCOPHAGE [Concomitant]
  4. AVANDIA [Concomitant]
  5. AMARYL [Concomitant]
  6. VASOTEC [Concomitant]
  7. TOPROL-XL [Concomitant]
  8. COZAAR [Concomitant]
  9. TRICOR [Concomitant]
  10. LIPITOR [Concomitant]
  11. PLAVIX [Concomitant]
  12. ASPIRIN [Concomitant]
  13. NITROGLYCERIN [Concomitant]
  14. LEVOXYL [Concomitant]
  15. NEXIUM [Concomitant]
  16. ZYRTEC [Concomitant]
  17. CALCIUM/VITAMIN D NOS [Concomitant]
  18. MULTIVITAMIN [Concomitant]
  19. MAGNESIUM [Concomitant]
  20. QUININE [Concomitant]
  21. FISH OIL [Concomitant]
  22. VALIUM [Concomitant]
  23. ACTONEL [Concomitant]
  24. AMARYL [Concomitant]

REACTIONS (10)
  - APATHY [None]
  - BLOOD GLUCOSE DECREASED [None]
  - BLOOD GLUCOSE INCREASED [None]
  - DEPRESSION [None]
  - DIZZINESS [None]
  - FATIGUE [None]
  - FEELING JITTERY [None]
  - NAUSEA [None]
  - VOMITING [None]
  - WEIGHT DECREASED [None]
